FAERS Safety Report 9252434 (Version 1)
Quarter: 2013Q2

REPORT INFORMATION
  Report Type: Report from Study
  Country: CA (occurrence: CA)
  Receive Date: 20130424
  Receipt Date: 20130424
  Transmission Date: 20140414
  Serious: Yes (Hospitalization)
  Sender: FDA-Public Use
  Company Number: PHHY2012CA049552

PATIENT
  Sex: Female

DRUGS (3)
  1. ACLASTA [Suspect]
     Indication: OSTEOPOROSIS
     Dosage: UNK UKN, UNK
     Route: 042
     Dates: start: 20110413
  2. ACLASTA [Suspect]
     Dosage: UNK
     Route: 042
     Dates: start: 20120425
  3. CALCIUM [Concomitant]

REACTIONS (2)
  - Infection [Unknown]
  - Constipation [Unknown]
